FAERS Safety Report 10154278 (Version 1)
Quarter: 2014Q2

REPORT INFORMATION
  Report Type: Spontaneous
  Country: CN (occurrence: None)
  Receive Date: 20140502
  Receipt Date: 20140502
  Transmission Date: 20141212
  Serious: Yes (Other)
  Sender: FDA-Public Use
  Company Number: 2014000120

PATIENT
  Age: 65 Year
  Sex: Female
  Weight: 52 kg

DRUGS (1)
  1. ACEON  (PERINDOPRIL ERBUMINE) TABLET, 4MG [Suspect]
     Indication: HYPERTENSION
     Route: 048
     Dates: start: 20130626, end: 20130701

REACTIONS (4)
  - Pain [None]
  - Urticaria [None]
  - Macule [None]
  - Pruritus [None]
